FAERS Safety Report 9299172 (Version 2)
Quarter: 2013Q2

REPORT INFORMATION
  Report Type: Report from Study
  Country: MX (occurrence: MX)
  Receive Date: 20130520
  Receipt Date: 20130625
  Transmission Date: 20140414
  Serious: Yes (Hospitalization)
  Sender: FDA-Public Use
  Company Number: MX-ABBOTT-13P-107-1091494-00

PATIENT
  Age: 59 Year
  Sex: Female
  Weight: 75 kg

DRUGS (5)
  1. HUMIRA [Suspect]
     Indication: RHEUMATOID ARTHRITIS
     Route: 058
     Dates: start: 201011, end: 201304
  2. ACETYLSALICYLIC ACID (ASPIRINA PROTECT) [Concomitant]
     Indication: CARDIAC DISORDER
     Route: 048
  3. VYTORIN [Concomitant]
     Indication: CARDIAC DISORDER
     Route: 048
  4. PLAVIX [Concomitant]
     Indication: CARDIAC DISORDER
     Route: 048
  5. TENORMIN [Concomitant]
     Indication: CARDIAC DISORDER
     Route: 048

REACTIONS (6)
  - Renal pain [Recovered/Resolved]
  - Blood creatinine increased [Recovered/Resolved]
  - Diarrhoea [Recovered/Resolved]
  - Vomiting [Recovered/Resolved]
  - Headache [Recovered/Resolved]
  - Fatigue [Recovered/Resolved]
